FAERS Safety Report 9881441 (Version 1)
Quarter: 2014Q1

REPORT INFORMATION
  Report Type: Report from Study
  Country: CO (occurrence: CO)
  Receive Date: 20140207
  Receipt Date: 20140207
  Transmission Date: 20141002
  Serious: Yes (Hospitalization)
  Sender: FDA-Public Use
  Company Number: CO-ASTRAZENECA-2014SE07435

PATIENT
  Age: 26751 Day
  Sex: Female

DRUGS (1)
  1. BRILINTA [Suspect]
     Indication: INFARCTION
     Route: 048
     Dates: start: 20131023

REACTIONS (2)
  - Abdominal pain [Unknown]
  - Chills [Unknown]
